FAERS Safety Report 17909788 (Version 1)
Quarter: 2020Q2

REPORT INFORMATION
  Report Type: Report from Study
  Country: US (occurrence: US)
  Receive Date: 20200617
  Receipt Date: 20200617
  Transmission Date: 20200714
  Serious: Yes (Hospitalization)
  Sender: FDA-Public Use
  Company Number: US-GILEAD-2020-0472476

PATIENT
  Age: 65 Year
  Sex: Male

DRUGS (8)
  1. BENDAMUSTINE [Concomitant]
     Active Substance: BENDAMUSTINE
     Dosage: UNKNOWN
     Dates: start: 2017
  2. IBRUTINIB [Concomitant]
     Active Substance: IBRUTINIB
     Dosage: UNKNOWN
  3. VALACICLOVIR [Concomitant]
     Active Substance: VALACYCLOVIR HYDROCHLORIDE
     Dosage: UNKNOWN
  4. PEGFILGRASTIM [Concomitant]
     Active Substance: PEGFILGRASTIM
     Dosage: UNKNOWN
  5. RITUXIMAB. [Concomitant]
     Active Substance: RITUXIMAB
     Dosage: UNKNOWN
     Dates: start: 2017, end: 201808
  6. ACP-196 [Concomitant]
     Active Substance: ACALABRUTINIB
     Dosage: UNKNOWN
  7. AXICABTAGENE CILOLEUCEL [Suspect]
     Active Substance: AXICABTAGENE CILOLEUCEL
     Indication: MANTLE CELL LYMPHOMA
     Dosage: UNK
     Route: 042
     Dates: start: 20180808, end: 20180808
  8. TRIMETHOPRIM. [Concomitant]
     Active Substance: TRIMETHOPRIM
     Dosage: UNKNOWN

REACTIONS (9)
  - Diarrhoea [Recovered/Resolved]
  - Fatigue [Recovered/Resolved]
  - Hyperhidrosis [Recovered/Resolved]
  - Pleural effusion [Recovered/Resolved]
  - Dysarthria [Recovered/Resolved]
  - Aphasia [Recovered/Resolved]
  - Cough [Recovered/Resolved]
  - Pyrexia [Recovered/Resolved]
  - Fatigue [Recovered/Resolved]

NARRATIVE: CASE EVENT DATE: 201808
